FAERS Safety Report 4785892-9 (Version None)
Quarter: 2005Q3

REPORT INFORMATION
  Report Type: 
  Country: None (occurrence: None)
  Receive Date: 20050930
  Receipt Date: 20050922
  Transmission Date: 20060218
  Serious: Yes (Death, Hospitalization)
  Sender: FDA-Public Use
  Company Number: 2005JP001575

PATIENT
  Age: 10 Year
  Sex: Female
  Weight: 24 kg

DRUGS (2)
  1. PROGRAF [Suspect]
     Indication: LIVER TRANSPLANT
     Dosage: 1.00 MG, BID, ORAL
     Route: 048
     Dates: start: 19980118, end: 20050131
  2. STEROID INJECTION [Concomitant]

REACTIONS (10)
  - BURKITT'S LYMPHOMA [None]
  - CYTOMEGALOVIRUS INFECTION [None]
  - ENTEROCOLITIS [None]
  - EPSTEIN-BARR VIRUS INFECTION [None]
  - HAEMODIALYSIS [None]
  - LYMPHOPROLIFERATIVE DISORDER [None]
  - MULTI-ORGAN FAILURE [None]
  - PLEURISY [None]
  - RENAL FAILURE [None]
  - RESPIRATORY FAILURE [None]
